FAERS Safety Report 6378075-2 (Version None)
Quarter: 2009Q3

REPORT INFORMATION
  Report Type: 
  Country: None (occurrence: None)
  Receive Date: 20090925
  Receipt Date: 20090917
  Transmission Date: 20100115
  Serious: Yes (Other)
  Sender: FDA-Public Use
  Company Number: US-ELI_LILLY_AND_COMPANY-US200909004121

PATIENT
  Sex: Male

DRUGS (1)
  1. FORTEO [Suspect]
     Dates: start: 20070301, end: 20090316

REACTIONS (3)
  - BONE DENSITY DECREASED [None]
  - PULMONARY EMBOLISM [None]
  - THROMBOSIS [None]
